FAERS Safety Report 22219538 (Version 1)
Quarter: 2023Q2

REPORT INFORMATION
  Report Type: Spontaneous
  Country: CA (occurrence: CA)
  Receive Date: 20230417
  Receipt Date: 20230417
  Transmission Date: 20230722
  Serious: Yes (Other)
  Sender: FDA-Public Use
  Company Number: CA-ORGANON-O2304CAN001356

PATIENT
  Age: 31 Year
  Sex: Female

DRUGS (4)
  1. NUVARING [Suspect]
     Active Substance: ETHINYL ESTRADIOL\ETONOGESTREL
     Dosage: 1 DOSAGE FORM, CYCLICAL; RING (SLOW RELEASE)
     Route: 067
  2. ADVIL [Concomitant]
     Active Substance: IBUPROFEN
     Dosage: DOSAGE FORM:NOT SPECIFIED
     Route: 065
  3. ALBUTEROL [Concomitant]
     Active Substance: ALBUTEROL
     Dosage: DOSAGE FORM:LIQUID INTRAVENOUS
     Route: 065
  4. TYLENOL [Concomitant]
     Active Substance: ACETAMINOPHEN
     Dosage: UNK
     Route: 065

REACTIONS (8)
  - Cerebral venous sinus thrombosis [Unknown]
  - Head discomfort [Unknown]
  - Headache [Unknown]
  - Nausea [Unknown]
  - Pain [Unknown]
  - Photophobia [Unknown]
  - Thunderclap headache [Unknown]
  - Vision blurred [Unknown]
